FAERS Safety Report 5889548-0 (Version None)
Quarter: 2008Q3

REPORT INFORMATION
  Report Type: 
  Country: None (occurrence: None)
  Receive Date: 20080919
  Receipt Date: 20080912
  Transmission Date: 20090109
  Serious: Yes (Hospitalization)
  Sender: FDA-Public Use
  Company Number: A0733235A

PATIENT
  Age: 61 Year
  Sex: Male
  Weight: 129.5 kg

DRUGS (12)
  1. AVANDIA [Suspect]
     Dosage: 8MG PER DAY
     Route: 048
     Dates: start: 20010101, end: 20070101
  2. LISINOPRIL [Concomitant]
  3. ATENOLOL [Concomitant]
  4. SIMVASTATIN [Concomitant]
  5. OMEPRAZOLE [Concomitant]
  6. NITROGLYCERIN [Concomitant]
  7. HYDROCHLOROTHIAZIDE [Concomitant]
  8. GLIMEPIRIDE [Concomitant]
  9. GABAPENTIN [Concomitant]
  10. ALBUTEROL [Concomitant]
  11. DIAZEPAM [Concomitant]
  12. ASPIRIN [Concomitant]

REACTIONS (3)
  - ACUTE CORONARY SYNDROME [None]
  - CARDIAC FAILURE CONGESTIVE [None]
  - CORONARY ARTERY DISEASE [None]
